FAERS Safety Report 9410055 (Version 1)
Quarter: 2013Q3

REPORT INFORMATION
  Report Type: Spontaneous
  Country: FR (occurrence: FR)
  Receive Date: 20130719
  Receipt Date: 20130719
  Transmission Date: 20140515
  Serious: Yes (Hospitalization, Other)
  Sender: FDA-Public Use
  Company Number: FR-009507513-1307FRA005583

PATIENT
  Age: 66 Year
  Sex: Female

DRUGS (14)
  1. ZOLINZA [Suspect]
     Indication: MYCOSIS FUNGOIDES
     Dosage: 400 MG, QD
     Route: 048
     Dates: start: 20120712, end: 20120729
  2. EFFEXOR [Suspect]
     Indication: DEPRESSION
     Dosage: 75 MG, BID
     Route: 048
     Dates: end: 20120729
  3. EFFEXOR [Suspect]
     Dosage: UNK
  4. HYPERIUM [Concomitant]
  5. LEVOTHYROX [Concomitant]
  6. LEXOMIL [Concomitant]
  7. LASILIX [Concomitant]
  8. ATARAX (ALPRAZOLAM) [Concomitant]
  9. LOXEN [Concomitant]
  10. HYDROCORTISONE [Concomitant]
  11. ARIXTRA [Concomitant]
  12. INEXIUM [Concomitant]
  13. DIFFU-K [Concomitant]
  14. CETIRIZINE HYDROCHLORIDE [Concomitant]

REACTIONS (2)
  - Pancreatitis acute [Recovered/Resolved with Sequelae]
  - Diabetes mellitus [Not Recovered/Not Resolved]
